FAERS Safety Report 4698211-3 (Version None)
Quarter: 2005Q2

REPORT INFORMATION
  Report Type: 
  Country: None (occurrence: None)
  Receive Date: 20050623
  Receipt Date: 20050610
  Transmission Date: 20051028
  Serious: Yes (Other)
  Sender: FDA-Public Use
  Company Number: DE-JNJFOC-20050603246

PATIENT
  Sex: Male

DRUGS (5)
  1. HALOPERIDOL [Suspect]
     Route: 065
  2. RISPERDAL CONSTA [Suspect]
     Route: 030
  3. SEROQUEL [Suspect]
  4. SOLIAN [Suspect]
  5. CIPRALEX [Suspect]
     Indication: DEPRESSION
     Dosage: START DATE = END OF APR-2005
     Route: 049

REACTIONS (2)
  - AGRANULOCYTOSIS [None]
  - DEPRESSION [None]
